FAERS Safety Report 7984453-8 (Version None)
Quarter: 2011Q4

REPORT INFORMATION
  Report Type: 
  Country: None (occurrence: None)
  Receive Date: 20111216
  Receipt Date: 20111205
  Transmission Date: 20120403
  Serious: Yes (Hospitalization, Other)
  Sender: FDA-Public Use
  Company Number: US-ELI_LILLY_AND_COMPANY-US201107002065

PATIENT
  Sex: Female
  Weight: 47 kg

DRUGS (2)
  1. PREDNISONE [Concomitant]
  2. FORTEO [Suspect]
     Indication: OSTEOPOROSIS
     Dosage: 20 UG, QD
     Route: 065

REACTIONS (10)
  - PELVIC FRACTURE [None]
  - MALAISE [None]
  - FEELING HOT [None]
  - NAUSEA [None]
  - PAIN [None]
  - SKIN CANCER [None]
  - SPINAL FRACTURE [None]
  - INFLUENZA LIKE ILLNESS [None]
  - FALL [None]
  - HEADACHE [None]
